FAERS Safety Report 8457483-X (Version None)
Quarter: 2012Q2

REPORT INFORMATION
  Report Type: 
  Country: None (occurrence: None)
  Receive Date: 20120622
  Receipt Date: 20120613
  Transmission Date: 20120825
  Serious: Yes (Hospitalization, Other)
  Sender: FDA-Public Use
  Company Number: CZ-AMGEN-CZESP2012033358

PATIENT
  Age: 49 Year
  Sex: Male

DRUGS (2)
  1. ENBREL [Suspect]
     Indication: ANKYLOSING SPONDYLITIS
     Dosage: 50 MG, WEEKLY
     Route: 058
     Dates: start: 20090213, end: 20120223
  2. DICLOFENAC SODIUM [Concomitant]
     Dosage: WHEN NEEDED

REACTIONS (2)
  - ATYPICAL MYCOBACTERIAL PNEUMONIA [None]
  - DECREASED IMMUNE RESPONSIVENESS [None]
